FAERS Safety Report 11211091 (Version 1)
Quarter: 2015Q2

REPORT INFORMATION
  Report Type: Spontaneous
  Country: US (occurrence: US)
  Receive Date: 20150623
  Receipt Date: 20150623
  Transmission Date: 20150821
  Serious: No
  Sender: FDA-Public Use
  Company Number: US-BRISTOL-MYERS SQUIBB COMPANY-BMS-2015-039178

PATIENT
  Sex: Female

DRUGS (1)
  1. ABILIFY [Suspect]
     Active Substance: ARIPIPRAZOLE
     Indication: BIPOLAR I DISORDER
     Dosage: 5 MG, QD
     Route: 048

REACTIONS (4)
  - Tardive dyskinesia [Recovered/Resolved]
  - Dyskinesia [Recovered/Resolved]
  - Ear disorder [Recovered/Resolved]
  - Wrong technique in drug usage process [Recovered/Resolved]
